FAERS Safety Report 17649138 (Version 1)
Quarter: 2020Q2

REPORT INFORMATION
  Report Type: Spontaneous
  Country: US (occurrence: US)
  Receive Date: 20200408
  Receipt Date: 20200408
  Transmission Date: 20200713
  Serious: Yes (Other)
  Sender: FDA-Public Use
  Company Number: NVSC2020US094895

PATIENT
  Age: 73 Year

DRUGS (1)
  1. PREDNISONE. [Suspect]
     Active Substance: PREDNISONE
     Indication: BRONCHITIS
     Dosage: UNK
     Route: 065

REACTIONS (6)
  - Mental disorder [Unknown]
  - Neurological symptom [Unknown]
  - Joint swelling [Unknown]
  - Disseminated Bacillus Calmette-Guerin infection [Unknown]
  - Pyrexia [Unknown]
  - Haematuria [Unknown]
